FAERS Safety Report 9144474 (Version 1)
Quarter: 2013Q1

REPORT INFORMATION
  Report Type: Report from Study
  Country: DE (occurrence: DE)
  Receive Date: 20130306
  Receipt Date: 20130306
  Transmission Date: 20140127
  Serious: Yes (Hospitalization)
  Sender: FDA-Public Use
  Company Number: DE-BAXTER-2013BAX007606

PATIENT
  Age: 58 Year
  Sex: Female
  Weight: 67 kg

DRUGS (23)
  1. ENDOXAN 1G [Suspect]
     Indication: BREAST CANCER
     Route: 042
     Dates: start: 20121004
  2. ENDOXAN 1G [Suspect]
     Route: 042
     Dates: start: 20121206
  3. EPIRUBICIN HYDROCHLORIDE [Suspect]
     Indication: BREAST CANCER
     Route: 042
     Dates: start: 20121004
  4. EPIRUBICIN HYDROCHLORIDE [Suspect]
     Route: 042
     Dates: start: 20121206
  5. PERTUZUMAB [Suspect]
     Indication: BREAST CANCER
     Route: 042
     Dates: start: 20121227
  6. PERTUZUMAB [Suspect]
     Route: 042
     Dates: start: 20130211
  7. TRASTUZUMAB [Suspect]
     Indication: BREAST CANCER
     Route: 042
     Dates: start: 20121227
  8. TRASTUZUMAB [Suspect]
     Route: 042
     Dates: start: 20130211
  9. PACLITAXEL [Suspect]
     Indication: BREAST CANCER
     Route: 042
     Dates: start: 20121227
  10. PACLITAXEL [Suspect]
     Route: 042
     Dates: start: 20121228
  11. PACLITAXEL [Suspect]
     Route: 042
     Dates: start: 20130111
  12. PACLITAXEL [Suspect]
     Route: 042
     Dates: start: 20130218
  13. DEXAMETHASONE [Concomitant]
     Indication: PRODUCT USED FOR UNKNOWN INDICATION
     Route: 065
     Dates: start: 20121004
  14. DEXAMETHASONE [Concomitant]
     Route: 065
     Dates: start: 20130218, end: 20130218
  15. DEXAMETHASONE [Concomitant]
     Route: 065
     Dates: start: 20130218
  16. GRAVIBINON [Concomitant]
     Indication: PRODUCT USED FOR UNKNOWN INDICATION
     Route: 065
     Dates: start: 20121004
  17. APREPITANT [Concomitant]
     Indication: PRODUCT USED FOR UNKNOWN INDICATION
     Route: 065
     Dates: start: 20121004
  18. GRANISETRON HYDROCHLORIDE [Concomitant]
     Indication: PRODUCT USED FOR UNKNOWN INDICATION
     Route: 065
     Dates: start: 20121004
  19. GRANISETRON HYDROCHLORIDE [Concomitant]
     Route: 065
     Dates: start: 20120218, end: 20120218
  20. CLEMASTINE FUMARATE [Concomitant]
     Indication: PRODUCT USED FOR UNKNOWN INDICATION
     Route: 065
     Dates: start: 20130218, end: 20130218
  21. CLEMASTINE FUMARATE [Concomitant]
     Route: 065
     Dates: start: 20121227
  22. CIMETIDINE [Concomitant]
     Indication: PRODUCT USED FOR UNKNOWN INDICATION
     Route: 065
     Dates: start: 20130218, end: 20130218
  23. CIMETIDINE [Concomitant]
     Route: 065
     Dates: start: 20121227

REACTIONS (3)
  - Hypersensitivity [Recovered/Resolved]
  - Upper respiratory tract infection [Recovered/Resolved]
  - Dyspnoea [Recovered/Resolved]
